FAERS Safety Report 10949585 (Version 1)
Quarter: 2015Q1

REPORT INFORMATION
  Report Type: Spontaneous
  Country: US (occurrence: None)
  Receive Date: 20150323
  Receipt Date: 20150323
  Transmission Date: 20150721
  Serious: Yes (Hospitalization)
  Sender: FDA-Public Use
  Company Number: None

PATIENT
  Age: 69 Year
  Sex: Male
  Weight: 84.5 kg

DRUGS (1)
  1. CEFEPIME [Suspect]
     Active Substance: CEFEPIME\CEFEPIME HYDROCHLORIDE
     Route: 042
     Dates: start: 20141202, end: 20141205

REACTIONS (5)
  - Myoclonus [None]
  - Mental status changes [None]
  - Fall [None]
  - Coma [None]
  - Encephalopathy [None]

NARRATIVE: CASE EVENT DATE: 20141205
